FAERS Safety Report 5106167-4 (Version None)
Quarter: 2006Q3

REPORT INFORMATION
  Report Type: 
  Country: None (occurrence: None)
  Receive Date: 20060912
  Receipt Date: 20060825
  Transmission Date: 20061208
  Serious: Yes (Life-Threatening, Hospitalization, Other)
  Sender: FDA-Public Use
  Company Number: JP200608000603

PATIENT
  Age: 50 Year
  Sex: Female
  Weight: 72 kg

DRUGS (3)
  1. OLANZAPINE [Suspect]
     Dosage: 20 MG, DAILY (1/D), ORAL
     Route: 048
     Dates: start: 20050728, end: 20050803
  2. OLANZAPINE [Suspect]
     Dosage: 20 MG, DAILY (1/D), ORAL
     Route: 048
     Dates: start: 20050804, end: 20060613
  3. RISPERDAL [Concomitant]

REACTIONS (13)
  - APALLIC SYNDROME [None]
  - BREAST MASS [None]
  - CARDIO-RESPIRATORY ARREST [None]
  - CHRONIC SINUSITIS [None]
  - GASTROSTOMY [None]
  - INAPPROPRIATE ANTIDIURETIC HORMONE SECRETION [None]
  - MALAISE [None]
  - MUTISM [None]
  - NEUROLEPTIC MALIGNANT SYNDROME [None]
  - RESPIRATORY DEPRESSION [None]
  - TRACHEOSTOMY [None]
  - TREATMENT NONCOMPLIANCE [None]
  - WEIGHT INCREASED [None]
